FAERS Safety Report 8926193 (Version 1)
Quarter: 2012Q4

REPORT INFORMATION
  Report Type: 
  Country: US (occurrence: US)
  Receive Date: 20121126
  Receipt Date: 20121126
  Transmission Date: 20130627
  Serious: No
  Sender: FDA-Public Use
  Company Number: US-BAYER-2012-122452

PATIENT
  Age: 22 Year
  Sex: Female

DRUGS (2)
  1. BEYAZ [Suspect]
     Indication: ACNE
     Dosage: UNK
     Route: 048
     Dates: start: 2010
  2. BEYAZ [Suspect]
     Indication: CONTRACEPTION

REACTIONS (1)
  - Drug dose omission [None]
